FAERS Safety Report 5422300-9 (Version None)
Quarter: 2007Q3

REPORT INFORMATION
  Report Type: 
  Country: None (occurrence: None)
  Receive Date: 20070822
  Receipt Date: 20070810
  Transmission Date: 20080115
  Serious: Yes (Life-Threatening, Hospitalization, Other)
  Sender: FDA-Public Use
  Company Number: HQWYE005628MAR07

PATIENT
  Sex: Female
  Weight: 40 kg

DRUGS (12)
  1. MYLOTARG [Suspect]
     Indication: ACUTE MYELOID LEUKAEMIA RECURRENT
     Route: 041
     Dates: start: 20070223, end: 20070223
  2. LANSOPRAZOLE [Concomitant]
     Route: 048
     Dates: start: 20070214, end: 20070301
  3. ITRACONAZOLE [Concomitant]
     Route: 048
     Dates: start: 20070214, end: 20070227
  4. OXYCONTIN [Concomitant]
     Route: 048
     Dates: start: 20070223, end: 20070307
  5. PENTCILLIN [Concomitant]
     Route: 041
     Dates: start: 20070316, end: 20070326
  6. BAKTAR [Concomitant]
     Dosage: UNKNOWN
     Route: 048
     Dates: start: 20070129, end: 20070307
  7. ZOLPIDEM TARTRATE [Concomitant]
     Dosage: UNKNOWN
     Route: 048
     Dates: start: 20070212, end: 20070309
  8. FUNGUARD [Concomitant]
     Route: 041
     Dates: start: 20070227, end: 20070305
  9. LEVOFLOXACIN [Concomitant]
     Route: 048
     Dates: start: 20070227, end: 20070304
  10. CARBENIN [Concomitant]
     Route: 041
     Dates: start: 20070305, end: 20070316
  11. FIRSTCIN [Concomitant]
     Route: 041
     Dates: start: 20070222, end: 20070305
  12. CLONAZEPAM [Concomitant]
     Route: 048
     Dates: start: 20070208, end: 20070307

REACTIONS (4)
  - ANAEMIA [None]
  - HYPERURICAEMIA [None]
  - NEUTROPENIA [None]
  - PLATELET COUNT DECREASED [None]
